FAERS Safety Report 6435614-0 (Version None)
Quarter: 2009Q4

REPORT INFORMATION
  Report Type: 
  Country: None (occurrence: None)
  Receive Date: 20091111
  Receipt Date: 20091104
  Transmission Date: 20100525
  Serious: Yes (Death, Hospitalization, Other)
  Sender: FDA-Public Use
  Company Number: FR-BAYER-200937954GPV

PATIENT
  Age: 58 Year
  Sex: Male
  Weight: 82 kg

DRUGS (9)
  1. ZEVALIN [Suspect]
     Indication: STEM CELL TRANSPLANT
     Dosage: 0.4 MCI/KG DAY -14
     Route: 042
  2. YTRACIS [Suspect]
     Indication: STEM CELL TRANSPLANT
     Dosage: 0,4 MCI/KG
     Route: 042
  3. FLUDARA [Suspect]
     Indication: STEM CELL TRANSPLANT
     Dosage: DAY -6,-5,-4,-3 AND -2
     Route: 042
  4. RITUXIMAB [Suspect]
     Indication: STEM CELL TRANSPLANT
     Route: 042
  5. RITUXIMAB [Suspect]
     Route: 042
  6. BUSULFAN [Suspect]
     Indication: STEM CELL TRANSPLANT
     Dosage: TOTAL DAILY DOSE: 4 MG/KG
     Route: 048
  7. METHOTREXATE [Concomitant]
  8. CYCLOSPORINE [Concomitant]
     Indication: PROPHYLAXIS AGAINST GRAFT VERSUS HOST DISEASE
  9. CELLCEPT [Concomitant]
     Indication: PROPHYLAXIS AGAINST GRAFT VERSUS HOST DISEASE

REACTIONS (8)
  - ACUTE RESPIRATORY DISTRESS SYNDROME [None]
  - ERYTHEMA [None]
  - GRAFT VERSUS HOST DISEASE [None]
  - HAEMODYNAMIC INSTABILITY [None]
  - HYPOXIA [None]
  - INTERSTITIAL LUNG DISEASE [None]
  - MULTI-ORGAN FAILURE [None]
  - RENAL FAILURE [None]
